FAERS Safety Report 6937327-5 (Version None)
Quarter: 2010Q3

REPORT INFORMATION
  Report Type: 
  Country: None (occurrence: None)
  Receive Date: 20100823
  Receipt Date: 20100813
  Transmission Date: 20110219
  Serious: Yes (Life-Threatening, Other)
  Sender: FDA-Public Use
  Company Number: US-BAXTER-2010BH017797

PATIENT
  Age: 17 Year
  Sex: Female
  Weight: 74 kg

DRUGS (6)
  1. OXYTOCIN [Suspect]
     Indication: LABOUR INDUCTION
     Route: 042
     Dates: start: 20100603, end: 20100604
  2. FENTANYL CITRATE [Concomitant]
     Indication: PAIN MANAGEMENT
     Route: 065
  3. BUPIVACAINE HCL [Concomitant]
     Indication: PAIN MANAGEMENT
     Route: 065
  4. LIDOCAINE [Concomitant]
     Indication: PAIN MANAGEMENT
     Route: 065
  5. STADOL [Concomitant]
     Indication: PAIN
     Route: 042
     Dates: start: 20100603, end: 20100603
  6. LACTATED RINGER'S AND DEXTROSE 5% IN PLASTIC CONTAINER [Concomitant]
     Indication: MEDICATION DILUTION
     Route: 042

REACTIONS (2)
  - DRUG EXPOSURE DURING PREGNANCY [None]
  - POSTPARTUM HAEMORRHAGE [None]
